FAERS Safety Report 23412996 (Version 1)
Quarter: 2024Q1

REPORT INFORMATION
  Report Type: Spontaneous
  Country: US (occurrence: US)
  Receive Date: 20240117
  Receipt Date: 20240117
  Transmission Date: 20240410
  Serious: No
  Sender: FDA-Public Use
  Company Number: US-NOVOPROD-1126264

PATIENT
  Sex: Female

DRUGS (1)
  1. OZEMPIC [Suspect]
     Active Substance: SEMAGLUTIDE
     Indication: Diabetes mellitus
     Dosage: 0.5 MG
     Route: 058
     Dates: start: 20230629

REACTIONS (5)
  - Skin burning sensation [Recovered/Resolved]
  - Wrong technique in product usage process [Unknown]
  - Incorrect dose administered by product [Unknown]
  - Device failure [Unknown]
  - Drug delivery system issue [Unknown]
